FAERS Safety Report 22521289 (Version 1)
Quarter: 2023Q2

REPORT INFORMATION
  Report Type: Spontaneous
  Country: US (occurrence: None)
  Receive Date: 20230602
  Receipt Date: 20230602
  Transmission Date: 20230722
  Serious: No
  Sender: FDA-Public Use
  Company Number: None

PATIENT
  Age: 62 Year
  Sex: Female
  Weight: 99.79 kg

DRUGS (1)
  1. TALTZ [Suspect]
     Active Substance: IXEKIZUMAB
     Indication: Psoriasis
     Dosage: INJECT  160MG (2 PENS) SUBCUTANEOUSLY AT  WEEK 0 , THE 80MG (1 PEN) AT WEEK 2 AS DIRECTED
     Route: 058
     Dates: start: 202303

REACTIONS (1)
  - Bacterial infection [None]
